FAERS Safety Report 4735567-7 (Version None)
Quarter: 2005Q3

REPORT INFORMATION
  Report Type: 
  Country: None (occurrence: None)
  Receive Date: 20050805
  Receipt Date: 20050309
  Transmission Date: 20060218
  Serious: Yes (Hospitalization, Other)
  Sender: FDA-Public Use
  Company Number: US-MERCK-0503USA02117

PATIENT
  Age: 50 Year
  Sex: Female
  Weight: 59 kg

DRUGS (54)
  1. VIOXX [Suspect]
     Indication: OSTEOARTHRITIS
     Route: 048
     Dates: start: 19990117, end: 20010130
  2. VENTOLIN [Concomitant]
     Indication: ASTHMA
     Route: 065
  3. ATROVENT [Concomitant]
     Indication: ASTHMA
     Route: 065
  4. AUGMENTIN '125' [Concomitant]
     Route: 065
  5. CEFTIN [Concomitant]
     Route: 065
  6. CELEBREX [Concomitant]
     Route: 065
  7. CIPROFLOXACIN HCL [Concomitant]
     Route: 065
  8. CLINDAMYCIN [Concomitant]
     Route: 065
  9. COGENTIN [Concomitant]
     Indication: PARKINSON'S DISEASE
     Route: 065
  10. CLONAZEPAM [Concomitant]
     Indication: PANIC ATTACK
     Route: 065
  11. CLONAZEPAM [Concomitant]
     Indication: SLEEP DISORDER
     Route: 065
  12. CLONIDINE [Concomitant]
     Route: 065
  13. [THERAPY UNSPECIFIED] [Concomitant]
     Route: 065
  14. CORTATRIGEN [Concomitant]
     Route: 065
  15. DEPAKOTE [Concomitant]
     Route: 065
  16. DOXYCYCLINE [Concomitant]
     Indication: INFECTION
     Route: 065
  17. LASIX [Concomitant]
     Indication: HYPERTENSION
     Route: 065
  18. LASIX [Concomitant]
     Indication: OEDEMA
     Route: 065
  19. HYDROCODONE BITARTRATE [Concomitant]
     Route: 065
  20. [THERAPY UNSPECIFIED] [Concomitant]
     Indication: PAIN
     Route: 065
  21. LEVAQUIN [Concomitant]
     Indication: INFECTION
     Route: 065
  22. LORAZEPAM [Concomitant]
     Route: 065
  23. MACROBID [Concomitant]
     Indication: INFECTION
     Route: 065
  24. MEDROXYPROGESTERONE ACETATE [Concomitant]
     Indication: HORMONE REPLACEMENT THERAPY
     Route: 065
  25. MIACALCIN [Concomitant]
     Route: 065
  26. MOBIC [Concomitant]
     Indication: OSTEOARTHRITIS
     Route: 065
  27. NASONEX [Concomitant]
     Route: 065
  28. NEURONTIN [Concomitant]
     Route: 065
  29. PENICILLIN (UNSPECIFIED) [Concomitant]
     Indication: INFECTION
     Route: 065
  30. PREMARIN [Concomitant]
     Route: 065
  31. PREMPRO [Concomitant]
     Indication: HORMONE REPLACEMENT THERAPY
     Route: 065
  32. PROMETHAZINE [Concomitant]
     Route: 065
  33. RANITIDINE [Concomitant]
     Indication: GASTROOESOPHAGEAL REFLUX DISEASE
     Route: 065
  34. SEROQUEL [Concomitant]
     Route: 065
  35. SERZONE [Concomitant]
     Indication: DEPRESSION
     Route: 065
  36. SERZONE [Concomitant]
     Indication: PANIC DISORDER
     Route: 065
  37. ZESTRIL [Concomitant]
     Indication: HYPERTENSION
     Route: 065
  38. ZOLOFT [Concomitant]
     Indication: DEPRESSION
     Route: 065
  39. ZOLOFT [Concomitant]
     Indication: ANXIETY DISORDER
     Route: 065
  40. ZYPREXA [Concomitant]
     Route: 065
  41. IBUPROFEN [Concomitant]
     Indication: PAIN
     Route: 065
  42. ULTRACET [Concomitant]
     Indication: PAIN
     Route: 065
  43. ROXICET [Concomitant]
     Indication: PAIN
     Route: 065
  44. NAVANE [Concomitant]
     Indication: EMOTIONAL DISORDER
     Route: 065
  45. NAVANE [Concomitant]
     Indication: SCHIZOPHRENIA
     Route: 065
  46. LANOXIN [Concomitant]
     Indication: CARDIAC FAILURE
     Route: 065
  47. NITRO-SPRAY [Concomitant]
     Indication: CHEST PAIN
     Route: 065
  48. PRILOSEC [Concomitant]
     Indication: GASTROOESOPHAGEAL REFLUX DISEASE
     Route: 065
  49. FOSAMAX [Concomitant]
     Indication: MINERAL SUPPLEMENTATION
     Route: 065
  50. [THERAPY UNSPECIFIED] [Concomitant]
     Route: 065
  51. PREDNISONE [Concomitant]
     Indication: ARTHRITIS
     Route: 065
  52. PREDNISONE [Concomitant]
     Indication: ASTHMA
     Route: 065
  53. ASPIRIN [Concomitant]
     Indication: ANTICOAGULANT THERAPY
     Route: 065
  54. ALBUTEROL [Concomitant]
     Route: 065

REACTIONS (8)
  - ANGINA PECTORIS [None]
  - CARDIOVASCULAR DISORDER [None]
  - CHEST PAIN [None]
  - CORONARY ARTERY DISEASE [None]
  - GALLBLADDER DISORDER [None]
  - MYOCARDIAL INFARCTION [None]
  - POLYTRAUMATISM [None]
  - POSTOPERATIVE INFECTION [None]
